FAERS Safety Report 18641710 (Version 1)
Quarter: 2020Q4

REPORT INFORMATION
  Report Type: Spontaneous
  Country: AT (occurrence: AT)
  Receive Date: 20201221
  Receipt Date: 20201221
  Transmission Date: 20210114
  Serious: Yes (Other)
  Sender: FDA-Public Use
  Company Number: NVSC2020AT333042

PATIENT
  Age: 13 Year
  Sex: Female

DRUGS (1)
  1. XICLAV [AMOXICILLIN/CLAVULANIC ACID] [Suspect]
     Active Substance: AMOXICILLIN\CLAVULANIC ACID
     Indication: TONSILLITIS
     Dosage: 1 DF, Q12H (2X T?GLICH)
     Route: 048
     Dates: start: 20201118, end: 20201125

REACTIONS (2)
  - Drug eruption [Recovered/Resolved]
  - Feeling abnormal [Recovered/Resolved]

NARRATIVE: CASE EVENT DATE: 202011
